FAERS Safety Report 22145769 (Version 4)
Quarter: 2025Q4

REPORT INFORMATION
  Report Type: Spontaneous
  Country: JP (occurrence: JP)
  Receive Date: 20230328
  Receipt Date: 20251017
  Transmission Date: 20260119
  Serious: Yes (Death, Other)
  Sender: UNITED THERAPEUTICS
  Company Number: JP-UNITED THERAPEUTICS-UNT-2023-008565

PATIENT
  Sex: Male
  Weight: 15.5 kg

DRUGS (5)
  1. UNITUXIN [Suspect]
     Active Substance: DINUTUXIMAB
     Indication: Neuroblastoma recurrent
     Dosage: 17.5 MG/M2, CYCLICAL (CYCLE 1)
     Route: 041
     Dates: start: 20230213, end: 20230216
  2. FILGRASTIM [Suspect]
     Active Substance: FILGRASTIM
     Indication: Neuroblastoma recurrent
     Dosage: 5 ?G/KG
     Dates: start: 20230210, end: 20230223
  3. FENTANYL [Concomitant]
     Active Substance: FENTANYL
     Indication: Analgesic therapy
     Dosage: UNK
     Dates: start: 20230306, end: 20230309
  4. MORPHINE HYDROCHLORIDE [Concomitant]
     Active Substance: MORPHINE HYDROCHLORIDE
     Indication: Prophylaxis
     Dosage: UNK
     Dates: start: 20230213, end: 20230215
  5. ACETAMINOPHEN [Concomitant]
     Active Substance: ACETAMINOPHEN
     Indication: Analgesic therapy
     Dosage: UNK
     Dates: start: 20230228, end: 20230309

REACTIONS (2)
  - Neuroblastoma recurrent [Fatal]
  - Platelet count decreased [Recovered/Resolved]

NARRATIVE: CASE EVENT DATE: 20230101
